FAERS Safety Report 5558457-9 (Version None)
Quarter: 2007Q4

REPORT INFORMATION
  Report Type: 
  Country: None (occurrence: None)
  Receive Date: 20071130
  Receipt Date: 20070926
  Transmission Date: 20080405
  Serious: No
  Sender: FDA-Public Use
  Company Number: US200709000306

PATIENT
  Age: 37 Year
  Sex: Female

DRUGS (16)
  1. BYETTA [Suspect]
     Indication: TYPE 2 DIABETES MELLITUS
     Dosage: 5 UG, 2/D, SUBCUTANEOUS, 10 UG, 2/D, SUBCUTANEOUS
     Route: 058
     Dates: start: 20070328, end: 20070401
  2. BYETTA [Suspect]
     Indication: TYPE 2 DIABETES MELLITUS
     Dosage: 5 UG, 2/D, SUBCUTANEOUS, 10 UG, 2/D, SUBCUTANEOUS
     Route: 058
     Dates: start: 20070428, end: 20070817
  3. METFORMIN HCL [Concomitant]
  4. ACTOS [Concomitant]
  5. ALBUTEROL [Concomitant]
  6. ZONEGRAN [Concomitant]
  7. ALPRAZOLAM [Concomitant]
  8. METOCLOPRAMIDE [Concomitant]
  9. SIMVASTATIN [Concomitant]
  10. VICODIN [Concomitant]
  11. ATENOLOL [Concomitant]
  12. MIRAPEX [Concomitant]
  13. LISINOPRIL [Concomitant]
  14. CLOPIDOGREL BISULFATE [Concomitant]
  15. OMEPRAZOLE MAGNESIUM (OMEPRAZOLE MAGNESIUM) [Concomitant]
  16. EZETIMIBE [Concomitant]

REACTIONS (10)
  - ABDOMINAL DISTENSION [None]
  - ABDOMINAL PAIN [None]
  - BLOOD GLUCOSE INCREASED [None]
  - CONSTIPATION [None]
  - COUGH [None]
  - DYSPNOEA [None]
  - FATIGUE [None]
  - IMPAIRED GASTRIC EMPTYING [None]
  - NAUSEA [None]
  - RETCHING [None]
